FAERS Safety Report 11301590 (Version 2)
Quarter: 2017Q1

REPORT INFORMATION
  Report Type: Spontaneous
  Country: US (occurrence: US)
  Receive Date: 20150722
  Receipt Date: 20170206
  Transmission Date: 20170428
  Serious: No
  Sender: FDA-Public Use
  Company Number: US-ELI_LILLY_AND_COMPANY-US200908002886

PATIENT
  Age: 70 Year
  Sex: Male

DRUGS (1)
  1. HUMATROPE [Suspect]
     Active Substance: SOMATROPIN
     Indication: ATROPHY
     Dosage: 0.7 MG, BID
     Route: 065
     Dates: start: 1998

REACTIONS (5)
  - Visual acuity reduced [Not Recovered/Not Resolved]
  - Asthenia [Unknown]
  - Cataract [Not Recovered/Not Resolved]
  - Gait disturbance [Unknown]
  - Off label use [Unknown]

NARRATIVE: CASE EVENT DATE: 1998
